FAERS Safety Report 7116077-9 (Version None)
Quarter: 2010Q4

REPORT INFORMATION
  Report Type: 
  Country: None (occurrence: None)
  Receive Date: 20101122
  Receipt Date: 20101112
  Transmission Date: 20110411
  Serious: Yes (Other)
  Sender: FDA-Public Use
  Company Number: BR-ROCHE-741416

PATIENT
  Sex: Male
  Weight: 90 kg

DRUGS (6)
  1. TOCILIZUMAB [Suspect]
     Indication: RHEUMATOID ARTHRITIS
     Dosage: HE RECEIVED INFUSIONS ON 12 JULY 2010, 12 AUGUST 2010 AND 30 SEPTEMBER 2010
     Route: 042
     Dates: start: 20100610, end: 20100930
  2. METICORTEN [Concomitant]
  3. ARAVA [Concomitant]
  4. ALOPURINOL [Concomitant]
  5. OMEPRAZOLE [Concomitant]
     Dosage: FREQUENCY: FASTING
  6. METHOTREXATE [Concomitant]
     Dosage: 06 TABLETS/WEEK

REACTIONS (2)
  - DRUG INEFFECTIVE [None]
  - INVESTIGATION ABNORMAL [None]
